FAERS Safety Report 13799086 (Version 2)
Quarter: 2019Q1

REPORT INFORMATION
  Report Type: Spontaneous
  Country: US (occurrence: US)
  Receive Date: 20170727
  Receipt Date: 20190226
  Transmission Date: 20190417
  Serious: No
  Sender: FDA-Public Use
  Company Number: US-JNJFOC-20170509744

PATIENT
  Age: 59 Year
  Sex: Female
  Weight: 77.11 kg

DRUGS (3)
  1. VISINE A [Suspect]
     Active Substance: NAPHAZOLINE HYDROCHLORIDE\PHENIRAMINE MALEATE
     Indication: VISION BLURRED
     Dosage: 1 DROP IN 1 EYE, 2 DROPS IN THE OTHER, EVERY 4 HOURS AT FIRST, THEN LESS OFTEN
     Route: 047
     Dates: start: 20170505
  2. VISINE A [Suspect]
     Active Substance: NAPHAZOLINE HYDROCHLORIDE\PHENIRAMINE MALEATE
     Indication: FOREIGN BODY IN EYE
     Dosage: 1 DROP IN 1 EYE, 2 DROPS IN THE OTHER, EVERY 4 HOURS AT FIRST, THEN LESS OFTEN
     Route: 047
     Dates: start: 20170505
  3. VISINE A [Suspect]
     Active Substance: NAPHAZOLINE HYDROCHLORIDE\PHENIRAMINE MALEATE
     Indication: EYE IRRITATION
     Dosage: 1 DROP IN 1 EYE, 2 DROPS IN THE OTHER, EVERY 4 HOURS AT FIRST, THEN LESS OFTEN
     Route: 047
     Dates: start: 20170505

REACTIONS (4)
  - Intentional product use issue [Unknown]
  - Off label use [Unknown]
  - Therapeutic response unexpected [Unknown]
  - Product use in unapproved indication [Unknown]

NARRATIVE: CASE EVENT DATE: 20170505
